FAERS Safety Report 14283884 (Version 3)
Quarter: 2019Q2

REPORT INFORMATION
  Report Type: Spontaneous
  Country: NL (occurrence: NL)
  Receive Date: 20171214
  Receipt Date: 20190518
  Transmission Date: 20190711
  Serious: Yes (Life-Threatening, Other)
  Sender: FDA-Public Use
  Company Number: NL-AUROBINDO-AUR-APL-2017-45276

PATIENT

DRUGS (5)
  1. CARBAMAZEPINE. [Concomitant]
     Active Substance: CARBAMAZEPINE
     Indication: PRODUCT USED FOR UNKNOWN INDICATION
     Dosage: 300 MILLIGRAM, DAILY
     Route: 065
     Dates: start: 20171020
  2. FOSINOPRIL TABLETS [Suspect]
     Active Substance: FOSINOPRIL
     Dosage: 20 MG, DAILY
     Route: 065
     Dates: start: 20171002
  3. FOSINOPRIL TABLETS [Suspect]
     Active Substance: FOSINOPRIL
     Indication: PRODUCT USED FOR UNKNOWN INDICATION
     Dosage: 10 MG, DAILY
     Route: 065
     Dates: start: 20170920, end: 20171002
  4. CARBAMAZEPINE. [Concomitant]
     Active Substance: CARBAMAZEPINE
     Dosage: 1200 MILLIGRAM, DAILY
     Route: 065
     Dates: start: 201708
  5. GREPID [Concomitant]
     Active Substance: CLOPIDOGREL BESILATE
     Indication: PRODUCT USED FOR UNKNOWN INDICATION
     Dosage: 75 MG, ONCE A DAY, 75 MGR. P.D.
     Route: 065
     Dates: start: 20171003, end: 20171003

REACTIONS (6)
  - Lacunar infarction [Recovered/Resolved with Sequelae]
  - Hypertensive crisis [Recovered/Resolved with Sequelae]
  - Cerebrovascular accident [Recovered/Resolved with Sequelae]
  - Paraesthesia [Not Recovered/Not Resolved]
  - Hypotension [Recovered/Resolved with Sequelae]
  - Cognitive disorder [Not Recovered/Not Resolved]

NARRATIVE: CASE EVENT DATE: 20171003
